FAERS Safety Report 11167721 (Version 1)
Quarter: 2015Q2

REPORT INFORMATION
  Report Type: Spontaneous
  Country: US (occurrence: None)
  Receive Date: 20150604
  Receipt Date: 20150604
  Transmission Date: 20150821
  Serious: Yes (Other)
  Sender: FDA-Public Use
  Company Number: None

PATIENT
  Age: 66 Year
  Sex: Female
  Weight: 113.4 kg

DRUGS (19)
  1. CLARATINE [Concomitant]
  2. GLIMEPHRIDE [Concomitant]
  3. CALCIUM + D [Concomitant]
     Active Substance: CALCIUM\VITAMIN D
  4. PUFFER AN LIQUID ALBUTERAL [Concomitant]
  5. MULTIVITAMIN WOMEN [Concomitant]
  6. MORPHINE SULFATE IR TABLET [Concomitant]
     Active Substance: MORPHINE SULFATE
  7. FISH OIL [Concomitant]
     Active Substance: FISH OIL
  8. PROAIR HFD [Concomitant]
  9. MYRBETRIQ [Suspect]
     Active Substance: MIRABEGRON
     Indication: HYPERTONIC BLADDER
     Dosage: 1ST ?25MG ?7?1 A DAY?MOUTH ?NDC# 0469-2601-07?2ND ?10MG?NDC# 51248-151-51
     Route: 048
     Dates: start: 20150409
  10. RISPERIDONE. [Concomitant]
     Active Substance: RISPERIDONE
  11. JAMUMET [Concomitant]
  12. OXYBUTYNIN [Concomitant]
     Active Substance: OXYBUTYNIN
  13. LEVOTHROXINE [Concomitant]
  14. OMPRAZOLE [Concomitant]
     Active Substance: OMEPRAZOLE
  15. MORPHINE SULFATE ER [Concomitant]
     Active Substance: MORPHINE SULFATE
  16. MONTELUKAST [Concomitant]
     Active Substance: MONTELUKAST SODIUM
  17. VENLAFAXINE ER [Concomitant]
     Active Substance: VENLAFAXINE HYDROCHLORIDE
  18. TRAZODONE [Concomitant]
     Active Substance: TRAZODONE HYDROCHLORIDE
  19. DIOVAN [Concomitant]
     Active Substance: VALSARTAN

REACTIONS (12)
  - Lethargy [None]
  - Chills [None]
  - Dizziness [None]
  - Feeling of body temperature change [None]
  - Malaise [None]
  - Fall [None]
  - Vomiting [None]
  - Somnolence [None]
  - Epistaxis [None]
  - Blood glucose decreased [None]
  - Hyperhidrosis [None]
  - Influenza [None]
